FAERS Safety Report 16851191 (Version 1)
Quarter: 2019Q3

REPORT INFORMATION
  Report Type: Spontaneous
  Country: US (occurrence: US)
  Receive Date: 20190925
  Receipt Date: 20190925
  Transmission Date: 20191005
  Serious: No
  Sender: FDA-Public Use
  Company Number: US-PFIZER INC-2019411600

PATIENT
  Age: 67 Year
  Sex: Female
  Weight: 66.67 kg

DRUGS (9)
  1. CALTRATE [Concomitant]
     Active Substance: CALCIUM CARBONATE
     Dosage: UNK
  2. PROBIOTIC [BIFIDOBACTERIUM LACTIS] [Concomitant]
     Active Substance: BIFIDOBACTERIUM ANIMALIS LACTIS
     Dosage: UNK, DAILY
  3. XANAX [Suspect]
     Active Substance: ALPRAZOLAM
     Indication: DIZZINESS
     Dosage: 0.25 MG, 3X/DAY
     Dates: start: 20190816
  4. FIRDAPSE [Suspect]
     Active Substance: AMIFAMPRIDINE
     Dosage: 15 MG, 3X/DAY (9AM, 3PM, 9PM)
     Route: 048
     Dates: start: 20190320, end: 201903
  5. ACTONEL [Concomitant]
     Active Substance: RISEDRONATE SODIUM
     Dosage: 35 MG, UNK
  6. FIRDAPSE [Suspect]
     Active Substance: AMIFAMPRIDINE
     Dosage: 35 MG, DAILY (10MG IN THE MORNING AND AFTERNOON AND 15MG AT NIGHT)
     Route: 048
     Dates: start: 201903
  7. FIRDAPSE [Suspect]
     Active Substance: AMIFAMPRIDINE
     Dosage: 35 MG, DAILY (10MG IN THE MORNING AND AFTERNOON AND 15MG AT NIGHT)
     Route: 048
     Dates: start: 201903
  8. FIRDAPSE [Suspect]
     Active Substance: AMIFAMPRIDINE
     Indication: MYASTHENIC SYNDROME
     Dosage: 10 MG, 3X/DAY
     Route: 048
     Dates: start: 20190313, end: 20190319
  9. MULTIVITAMIN [ASCORBIC ACID;NICOTINAMIDE;RETINOL;RIBOFLAVIN;THIAMINE;V [Concomitant]
     Dosage: UNK, DAILY

REACTIONS (5)
  - Visual impairment [Not Recovered/Not Resolved]
  - Off label use [Unknown]
  - Hand-eye coordination impaired [Not Recovered/Not Resolved]
  - Product use in unapproved indication [Unknown]
  - Muscle spasms [Not Recovered/Not Resolved]

NARRATIVE: CASE EVENT DATE: 2019
